FAERS Safety Report 6209773-9 (Version None)
Quarter: 2009Q2

REPORT INFORMATION
  Report Type: 
  Country: None (occurrence: None)
  Receive Date: 20090601
  Receipt Date: 20090501
  Transmission Date: 20091009
  Serious: No
  Sender: FDA-Public Use
  Company Number: US-BAYER-200920137NA

PATIENT
  Age: 18 Year
  Sex: Female

DRUGS (2)
  1. MIRENA [Suspect]
     Indication: CONTRACEPTION
     Route: 015
     Dates: start: 20080601, end: 20090429
  2. LOESTRIN FE 1/20 [Concomitant]
     Indication: CONTRACEPTION
     Route: 048

REACTIONS (7)
  - ABDOMINAL PAIN UPPER [None]
  - ALOPECIA [None]
  - AMENORRHOEA [None]
  - HEADACHE [None]
  - NAUSEA [None]
  - OVARIAN CYST [None]
  - PAIN [None]
